FAERS Safety Report 14660873 (Version 1)
Quarter: 2018Q1

REPORT INFORMATION
  Report Type: Spontaneous
  Country: US (occurrence: US)
  Receive Date: 20180318
  Receipt Date: 20180318
  Transmission Date: 20180509
  Serious: Yes (Hospitalization)
  Sender: FDA-Public Use
  Company Number: None

PATIENT
  Age: 62 Year
  Sex: Male

DRUGS (10)
  1. WARFARIN [Concomitant]
     Active Substance: WARFARIN
  2. OXYBUTY [Concomitant]
  3. ZYTIGA [Suspect]
     Active Substance: ABIRATERONE ACETATE
     Indication: BONE CANCER
     Dosage: 2 TABS (1000 MG) DAILY PO
     Route: 048
     Dates: start: 201712
  4. POLYETH GLYL [Concomitant]
  5. HYDRALAZ [Concomitant]
  6. ZYTIGA [Suspect]
     Active Substance: ABIRATERONE ACETATE
     Indication: PROSTATE CANCER
     Dosage: 2 TABS (1000 MG) DAILY PO
     Route: 048
     Dates: start: 201712
  7. PREDN [Concomitant]
  8. AMOX [Concomitant]
     Active Substance: UNSPECIFIED INGREDIENT
  9. AML/BENA [Concomitant]
  10. LACTULOSE. [Concomitant]
     Active Substance: LACTULOSE

REACTIONS (2)
  - Dizziness [None]
  - Pelvic venous thrombosis [None]

NARRATIVE: CASE EVENT DATE: 201802
